FAERS Safety Report 17591539 (Version 1)
Quarter: 2020Q1

REPORT INFORMATION
  Report Type: Spontaneous
  Country: DE (occurrence: DE)
  Receive Date: 20200327
  Receipt Date: 20200327
  Transmission Date: 20200409
  Serious: Yes (Other)
  Sender: FDA-Public Use
  Company Number: DE-LEO PHARMA-328880

PATIENT
  Age: 78 Year
  Sex: Male

DRUGS (1)
  1. PICATO [Suspect]
     Active Substance: INGENOL MEBUTATE
     Indication: SKIN EXFOLIATION
     Dosage: ONCE PER DAY, 3 DAYS
     Route: 003
     Dates: start: 20160208, end: 20160210

REACTIONS (3)
  - Product use in unapproved indication [Unknown]
  - Squamous cell carcinoma of skin [Unknown]
  - Skin neoplasm excision [Unknown]

NARRATIVE: CASE EVENT DATE: 2016
